FAERS Safety Report 4374176-9 (Version None)
Quarter: 2004Q2

REPORT INFORMATION
  Report Type: 
  Country: None (occurrence: None)
  Receive Date: 20040607
  Receipt Date: 20020319
  Transmission Date: 20050107
  Serious: Yes (Hospitalization)
  Sender: FDA-Public Use
  Company Number: US-MERCK-0203USA02020

PATIENT
  Age: 81 Year
  Sex: Male

DRUGS (2)
  1. ASPIRIN [Concomitant]
     Route: 065
  2. VIOXX [Suspect]
     Route: 048

REACTIONS (14)
  - ANXIETY [None]
  - ARTHROPATHY [None]
  - ASTHMA [None]
  - ATRIAL FIBRILLATION [None]
  - BLADDER CANCER RECURRENT [None]
  - CATARACT [None]
  - CHRONIC OBSTRUCTIVE AIRWAYS DISEASE [None]
  - DUODENITIS [None]
  - GASTRIC DISORDER [None]
  - GASTRITIS EROSIVE [None]
  - GASTROINTESTINAL HAEMORRHAGE [None]
  - HYPERGLYCAEMIA [None]
  - OESOPHAGITIS [None]
  - PRESBYOESOPHAGUS [None]
